FAERS Safety Report 25691752 (Version 1)
Quarter: 2025Q3

REPORT INFORMATION
  Report Type: Spontaneous
  Country: IN (occurrence: IN)
  Receive Date: 20250818
  Receipt Date: 20250818
  Transmission Date: 20251020
  Serious: Yes (Hospitalization)
  Sender: DAITO PHARMACEUTICALS
  Company Number: IN-Daito Pharmaceutical Co., Ltd.-2182736

PATIENT
  Age: 86 Year
  Sex: Female

DRUGS (2)
  1. METHOTREXATE SODIUM [Suspect]
     Active Substance: METHOTREXATE SODIUM
     Indication: Rheumatoid arthritis
  2. FOLIC ACID [Concomitant]
     Active Substance: FOLIC ACID

REACTIONS (7)
  - Dysphagia [Recovered/Resolved]
  - Product prescribing error [Unknown]
  - Overdose [Unknown]
  - Pyrexia [Recovered/Resolved]
  - Toxicity to various agents [Unknown]
  - Pancytopenia [Recovered/Resolved]
  - Oral disorder [Recovered/Resolved]
